FAERS Safety Report 26210323 (Version 1)
Quarter: 2025Q4

REPORT INFORMATION
  Report Type: Spontaneous
  Country: EU (occurrence: EU)
  Receive Date: 20251229
  Receipt Date: 20251229
  Transmission Date: 20260119
  Serious: Yes (Other)
  Sender: NOVO NORDISK
  Company Number: None

PATIENT
  Age: 68 Year
  Sex: Female
  Weight: 111 kg

DRUGS (1)
  1. OZEMPIC [Suspect]
     Active Substance: SEMAGLUTIDE
     Indication: Type 2 diabetes mellitus
     Dosage: 1 DF, QW
     Route: 058
     Dates: start: 20230511

REACTIONS (2)
  - Eye haematoma [Recovered/Resolved]
  - Macular hole [Recovered/Resolved]

NARRATIVE: CASE EVENT DATE: 20250528
